FAERS Safety Report 12195226 (Version 1)
Quarter: 2016Q1

REPORT INFORMATION
  Report Type: Spontaneous
  Country: US (occurrence: None)
  Receive Date: 20160318
  Receipt Date: 20160318
  Transmission Date: 20160526
  Serious: No
  Sender: FDA-Public Use
  Company Number: None

PATIENT
  Age: 57 Year
  Sex: Male

DRUGS (1)
  1. DOCU LIQUID [Suspect]
     Active Substance: DOCUSATE SODIUM
     Indication: CONSTIPATION
     Route: 048
     Dates: start: 20160314

REACTIONS (3)
  - Throat irritation [None]
  - Oropharyngeal pain [None]
  - Wrong technique in product usage process [None]

NARRATIVE: CASE EVENT DATE: 20160314
